FAERS Safety Report 17296174 (Version 1)
Quarter: 2020Q1

REPORT INFORMATION
  Report Type: Other
  Country: None (occurrence: CN)
  Receive Date: 20200122
  Receipt Date: 20200122
  Transmission Date: 20200409
  Serious: Yes (Hospitalization)
  Sender: FDA-Public Use
  Company Number: CN-JIANGSU HENGRUI MEDICINE CO., LTD.-2079271

PATIENT
  Age: 53 Year
  Sex: Male

DRUGS (7)
  1. XIAOAIPING TABLETS [Suspect]
     Active Substance: HERBALS
     Route: 048
     Dates: start: 20191001, end: 20191013
  2. CARBOPLATIN FOR INJECTION?FAIREN PHARMACEUTICAL GROUP HIDRON ONCOLOGY [Suspect]
     Active Substance: CARBOPLATIN
     Route: 041
     Dates: start: 20190930, end: 20190930
  3. PANTOPRAZOLE SODIUM ENTERIC-COATED PELLETS CAPSULES?WEISEN PHARMACEUTI [Suspect]
     Active Substance: PANTOPRAZOLE SODIUM
     Route: 048
     Dates: start: 20191001, end: 20191008
  4. DOCETAXEL INJECTION USP, 20 MG/1 ML, 80 MG/4 ML, AND 160 MG/8 ML (20 M [Suspect]
     Active Substance: DOCETAXEL
     Indication: LUNG NEOPLASM MALIGNANT
     Route: 041
     Dates: start: 20190930, end: 20190930
  5. BAZHEN GRANULES?MANUFACTURED BY NINGBOLIHUA PHARMACEUTICAL CO LTD [Suspect]
     Active Substance: HERBALS
     Route: 048
     Dates: start: 20191001, end: 20191005
  6. GLUCOSE INJECTION?CHENXIN PHARMACEUTICAL CO., LTD [Concomitant]
     Route: 041
     Dates: start: 20190930, end: 20190930
  7. SODIUM CHLORIDE INJECTION?CHENXIN PHARMACEUTICAL CO., LTD [Concomitant]
     Route: 041
     Dates: start: 20190930, end: 20190930

REACTIONS (3)
  - Abdominal distension [Recovering/Resolving]
  - Asthenia [Recovering/Resolving]
  - Hepatic function abnormal [Recovering/Resolving]

NARRATIVE: CASE EVENT DATE: 20191207
